FAERS Safety Report 7717626-X (Version None)
Quarter: 2011Q3

REPORT INFORMATION
  Report Type: 
  Country: None (occurrence: None)
  Receive Date: 20110830
  Receipt Date: 20110830
  Transmission Date: 20111222
  Serious: Yes (Hospitalization)
  Sender: FDA-Public Use
  Company Number: None

PATIENT
  Age: 83 Year
  Sex: Male
  Weight: 87 kg

DRUGS (14)
  1. FUROSEMIDE [Concomitant]
     Route: 048
  2. LOVASTATIN [Concomitant]
     Route: 048
  3. ASPIRIN [Concomitant]
     Route: 048
  4. POTASSIUM CHLORIDE [Concomitant]
     Route: 048
  5. MULTAQ [Suspect]
     Indication: ATRIAL FIBRILLATION
     Dosage: 400 MG
     Route: 048
     Dates: start: 20110701, end: 20110802
  6. MULTI-VITAMIN [Concomitant]
     Route: 048
  7. DILTIAZEM [Concomitant]
     Route: 048
  8. SYMBICORT [Concomitant]
  9. NASONEX [Concomitant]
     Route: 045
  10. AZITHROMYCIN [Concomitant]
     Route: 048
  11. CIPROFLOXACIN [Concomitant]
     Route: 048
  12. TERAZOSIN HCL [Concomitant]
     Route: 048
  13. PRADAXA [Concomitant]
     Route: 048
  14. LISINOPRIL [Concomitant]
     Route: 048

REACTIONS (4)
  - HYPOXIA [None]
  - LUNG INFILTRATION [None]
  - HEPATIC ENZYME INCREASED [None]
  - RESPIRATORY FAILURE [None]
